FAERS Safety Report 13815934 (Version 1)
Quarter: 2017Q3

REPORT INFORMATION
  Report Type: Spontaneous
  Country: US (occurrence: US)
  Receive Date: 20170731
  Receipt Date: 20170731
  Transmission Date: 20171127
  Serious: Yes (Death, Other)
  Sender: FDA-Public Use
  Company Number: US-SA-2016SA126341

PATIENT
  Age: 47 Year
  Sex: Male
  Weight: 99.7 kg

DRUGS (3)
  1. OXYCONTIN [Concomitant]
     Active Substance: OXYCODONE HYDROCHLORIDE
     Indication: PAIN
     Dosage: 7 YEARS AGO STARTED?60 MG STRENGTH
     Route: 065
  2. OXYCODONE HYDROCHLORIDE. [Concomitant]
     Active Substance: OXYCODONE HYDROCHLORIDE
     Indication: PAIN
     Dosage: 7 YEARS AGO STARTED?30 MG STRNGTH
     Route: 065
  3. AMBIEN [Suspect]
     Active Substance: ZOLPIDEM TARTRATE
     Indication: INSOMNIA
     Dosage: AT NIGHT
     Route: 048
     Dates: start: 20151124, end: 20151221

REACTIONS (3)
  - Completed suicide [Fatal]
  - Suicidal ideation [Unknown]
  - Personality change [Unknown]

NARRATIVE: CASE EVENT DATE: 20151124
